FAERS Safety Report 9380241 (Version 1)
Quarter: 2013Q3

REPORT INFORMATION
  Report Type: Spontaneous
  Country: US (occurrence: None)
  Receive Date: 20130701
  Receipt Date: 20130701
  Transmission Date: 20140515
  Serious: Yes (Other)
  Sender: FDA-Public Use
  Company Number: None

PATIENT
  Age: 47 Year
  Sex: Male
  Weight: 114.31 kg

DRUGS (1)
  1. KENALOG 40/MG/ML [Suspect]
     Indication: BACK PAIN
     Dosage: 1 DOSE 1 EPIDURAL
     Route: 008
     Dates: start: 20121206, end: 20121206

REACTIONS (8)
  - Dizziness [None]
  - Respiratory distress [None]
  - Scar [None]
  - Adrenal insufficiency [None]
  - Fall [None]
  - Vision blurred [None]
  - Hypersensitivity [None]
  - Renal failure [None]
